FAERS Safety Report 11468548 (Version 1)
Quarter: 2015Q3

REPORT INFORMATION
  Report Type: Spontaneous
  Country: US (occurrence: None)
  Receive Date: 20150904
  Receipt Date: 20150904
  Transmission Date: 20151125
  Serious: No
  Sender: FDA-Public Use
  Company Number: None

PATIENT
  Age: 30 Year
  Sex: Male
  Weight: 97.52 kg

DRUGS (3)
  1. METHYLPREDNISONE [Suspect]
     Active Substance: METHYLPREDNISOLONE
     Indication: RASH
     Dosage: USE AS DIRECTED
     Route: 048
  2. NEXIUM [Concomitant]
     Active Substance: ESOMEPRAZOLE MAGNESIUM
  3. FISH OIL [Concomitant]
     Active Substance: FISH OIL

REACTIONS (2)
  - Abdominal pain [None]
  - Diarrhoea [None]

NARRATIVE: CASE EVENT DATE: 20150902
